FAERS Safety Report 18587740 (Version 1)
Quarter: 2020Q4

REPORT INFORMATION
  Report Type: Spontaneous
  Country: US (occurrence: US)
  Receive Date: 20201207
  Receipt Date: 20201207
  Transmission Date: 20210114
  Serious: No
  Sender: FDA-Public Use
  Company Number: US-NOVOPROD-738302

PATIENT
  Sex: Male

DRUGS (1)
  1. NOVOLIN 70/30 [Suspect]
     Active Substance: INSULIN HUMAN
     Indication: PRODUCT USED FOR UNKNOWN INDICATION
     Dosage: UNK
     Route: 058
     Dates: start: 201708

REACTIONS (6)
  - Product storage error [Unknown]
  - Blood glucose increased [Unknown]
  - Product quality issue [Unknown]
  - Dizziness [Unknown]
  - Diarrhoea [Unknown]
  - Abdominal discomfort [Unknown]
